FAERS Safety Report 4910652-5 (Version None)
Quarter: 2006Q1

REPORT INFORMATION
  Report Type: 
  Country: None (occurrence: None)
  Receive Date: 20060214
  Receipt Date: 20060206
  Transmission Date: 20060701
  Serious: Yes (Other)
  Sender: FDA-Public Use
  Company Number: PHFR2006GB00771

PATIENT
  Age: 3 Year
  Sex: Female

DRUGS (2)
  1. ELIDEL [Suspect]
     Route: 061
  2. PROTOPIC [Suspect]
     Indication: ECZEMA
     Route: 065

REACTIONS (7)
  - ABDOMINAL MASS [None]
  - CONSTIPATION [None]
  - DIFFUSE LARGE B-CELL LYMPHOMA [None]
  - HEPATIC NEOPLASM [None]
  - INTUSSUSCEPTION [None]
  - SMALL INTESTINAL RESECTION [None]
  - SMALL INTESTINE CARCINOMA [None]
